FAERS Safety Report 21493000 (Version 1)
Quarter: 2022Q4

REPORT INFORMATION
  Report Type: Spontaneous
  Country: US (occurrence: None)
  Receive Date: 20221021
  Receipt Date: 20221021
  Transmission Date: 20230113
  Serious: No
  Sender: FDA-Public Use
  Company Number: 2022A349929

PATIENT
  Sex: Female

DRUGS (2)
  1. FASENRA [Suspect]
     Active Substance: BENRALIZUMAB
     Dosage: UNKNOWN DOSE EVERY EIGHT WEEKS
     Route: 065
  2. MEDROL [Concomitant]
     Active Substance: METHYLPREDNISOLONE

REACTIONS (1)
  - FEV1/FVC ratio decreased [Unknown]
